FAERS Safety Report 14854873 (Version 1)
Quarter: 2018Q2

REPORT INFORMATION
  Report Type: Spontaneous
  Country: US (occurrence: US)
  Receive Date: 20180507
  Receipt Date: 20180507
  Transmission Date: 20180711
  Serious: No
  Sender: FDA-Public Use
  Company Number: US-ROCHE-1911162

PATIENT
  Sex: Female

DRUGS (1)
  1. ESBRIET [Suspect]
     Active Substance: PIRFENIDONE
     Indication: PRODUCT USED FOR UNKNOWN INDICATION
     Dosage: 3 PILLS 3 TIMES PER DAY ;ONGOING: UNKNOWN
     Route: 048
     Dates: start: 20170315

REACTIONS (5)
  - Tongue blistering [Unknown]
  - Vomiting [Unknown]
  - Glossodynia [Unknown]
  - Dyspepsia [Unknown]
  - Headache [Unknown]
